FAERS Safety Report 9265639 (Version 2)
Quarter: 2013Q2

REPORT INFORMATION
  Report Type: Report from Study
  Country: US (occurrence: US)
  Receive Date: 20130501
  Receipt Date: 20130523
  Transmission Date: 20140414
  Serious: Yes (Death, Hospitalization)
  Sender: FDA-Public Use
  Company Number: US-ACTELION-A-NJ2013-80261

PATIENT
  Age: 52 Year
  Sex: Male

DRUGS (3)
  1. TRACLEER [Suspect]
     Indication: PORTOPULMONARY HYPERTENSION
     Dosage: UNK
     Route: 048
     Dates: end: 20130316
  2. REMODULIN [Suspect]
  3. LOVENOX [Concomitant]

REACTIONS (7)
  - Shock [Fatal]
  - Cirrhosis alcoholic [Fatal]
  - Renal failure acute [Fatal]
  - Malaise [Fatal]
  - Fatigue [Fatal]
  - Dehydration [Recovered/Resolved]
  - Hypotension [Recovered/Resolved]
